FAERS Safety Report 7518835-5 (Version None)
Quarter: 2011Q2

REPORT INFORMATION
  Report Type: 
  Country: None (occurrence: None)
  Receive Date: 20110512
  Receipt Date: 20110223
  Transmission Date: 20111010
  Serious: No
  Sender: FDA-Public Use
  Company Number: 1000018986

PATIENT
  Age: 55 Year
  Sex: Female

DRUGS (19)
  1. SAVELLA [Suspect]
     Indication: FIBROMYALGIA
     Dosage: 37.5 MG (37.5 MG, 1 IN 1 D), ORAL
     Route: 048
     Dates: start: 20110219, end: 20110220
  2. SAVELLA [Suspect]
     Indication: PAIN
     Dosage: 37.5 MG (37.5 MG, 1 IN 1 D), ORAL
     Route: 048
     Dates: start: 20110219, end: 20110220
  3. MS CONTIN  (MORPHINE SULFATE( (MORPHINE SULFATE) [Concomitant]
  4. XANAX [Concomitant]
  5. SAVELLA [Suspect]
     Indication: FIBROMYALGIA
     Dosage: 12.5 MG (12.5 MG, 1 IN 1 D), ORAL, 25 MG (12.5 MG, 2 IN 1 D), ORAL,
     Dates: start: 20110212, end: 20110218
  6. SAVELLA [Suspect]
     Indication: PAIN
     Dosage: 12.5 MG (12.5 MG, 1 IN 1 D), ORAL, 25 MG (12.5 MG, 2 IN 1 D), ORAL,
     Dates: start: 20110212, end: 20110218
  7. SAVELLA [Suspect]
     Indication: FIBROMYALGIA
     Dosage: 12.5 MG (12.5 MG, 1 IN 1 D), ORAL, 25 MG (12.5 MG, 2 IN 1 D), ORAL,
     Dates: start: 20110208, end: 20110211
  8. SAVELLA [Suspect]
     Indication: PAIN
     Dosage: 12.5 MG (12.5 MG, 1 IN 1 D), ORAL, 25 MG (12.5 MG, 2 IN 1 D), ORAL,
     Dates: start: 20110208, end: 20110211
  9. ELAVIL (AMITRIPTYLINE) (AMITRIPTYLINE) [Concomitant]
  10. AMBIEN [Concomitant]
  11. SAVELLA [Suspect]
     Indication: FIBROMYALGIA
     Dosage: 50 MG (25 MG, 2 IN 1 D), ORAL, 25 MG (12.5 MG, 2 IN 1 D), ORAL
     Route: 048
     Dates: start: 20110222
  12. SAVELLA [Suspect]
     Indication: PAIN
     Dosage: 50 MG (25 MG, 2 IN 1 D), ORAL, 25 MG (12.5 MG, 2 IN 1 D), ORAL
     Route: 048
     Dates: start: 20110222
  13. SAVELLA [Suspect]
     Indication: FIBROMYALGIA
     Dosage: 50 MG (25 MG, 2 IN 1 D), ORAL, 25 MG (12.5 MG, 2 IN 1 D), ORAL
     Route: 048
     Dates: start: 20110221, end: 20110221
  14. SAVELLA [Suspect]
     Indication: PAIN
     Dosage: 50 MG (25 MG, 2 IN 1 D), ORAL, 25 MG (12.5 MG, 2 IN 1 D), ORAL
     Route: 048
     Dates: start: 20110221, end: 20110221
  15. TOPAMAX (TOPIRAMATE) (TOPIRAMATE) [Concomitant]
  16. FIORICET (BUTALBITAL, ACETAMINOPHEN, CAFFEINE) (BUTALBITAL, ACETAMINOP [Concomitant]
  17. SYNTHROID (LEVOTHYROXINE SODIUM) (LEVOTHYROXINE SODIUM) [Concomitant]
  18. VICODIN [Concomitant]
  19. FLEXERIL (CYCLOBENZAPRINE) (CYCLOBENZAPRINE) [Concomitant]

REACTIONS (1)
  - HOT FLUSH [None]
